FAERS Safety Report 16037167 (Version 2)
Quarter: 2020Q1

REPORT INFORMATION
  Report Type: Spontaneous
  Country: US (occurrence: US)
  Receive Date: 20190305
  Receipt Date: 20200303
  Transmission Date: 20200409
  Serious: No
  Sender: FDA-Public Use
  Company Number: US-IMPAX LABORATORIES, LLC-2018-IPXL-03254

PATIENT
  Age: 73 Year
  Sex: Female
  Weight: 82 kg

DRUGS (3)
  1. RYTARY [Suspect]
     Active Substance: CARBIDOPA\LEVODOPA
     Dosage: 36.25MG/145 MG, 1 DOSAGE FORM, QID,
     Route: 048
     Dates: start: 201611
  2. LEVOTHYROXINE. [Concomitant]
     Active Substance: LEVOTHYROXINE
     Indication: HYPOTHYROIDISM
     Dosage: 0.05 MILLIGRAM, QD
     Route: 048
     Dates: start: 2014
  3. RYTARY [Suspect]
     Active Substance: CARBIDOPA\LEVODOPA
     Indication: PARKINSON^S DISEASE
     Dosage: 48.75/195 MG 1 CAPSULES, QID
     Route: 048
     Dates: start: 201611

REACTIONS (5)
  - Arthralgia [Not Recovered/Not Resolved]
  - Dyskinesia [Recovered/Resolved]
  - Pain in extremity [Not Recovered/Not Resolved]
  - Weight fluctuation [Not Recovered/Not Resolved]
  - Joint swelling [Not Recovered/Not Resolved]

NARRATIVE: CASE EVENT DATE: 201611
